FAERS Safety Report 9592410 (Version 1)
Quarter: 2013Q3

REPORT INFORMATION
  Report Type: Spontaneous
  Country: US (occurrence: None)
  Receive Date: 20130930
  Receipt Date: 20130930
  Transmission Date: 20140515
  Serious: Yes (Other)
  Sender: FDA-Public Use
  Company Number: 1000046743

PATIENT
  Age: 90 Year
  Sex: Female

DRUGS (9)
  1. LINZESS (LINACLOTIDE) (290 MICROGRAM, CAPSULES) [Suspect]
     Indication: IRRITABLE BOWEL SYNDROME
     Route: 048
     Dates: start: 20130713
  2. LINZESS (LINACLOTIDE) (290 MICROGRAM, CAPSULES) [Suspect]
     Indication: DIVERTICULUM
     Route: 048
     Dates: start: 20130713
  3. PROTONIX (PANTOPRAZOLE SODIUM) [Concomitant]
  4. BENTYL (DICYCLOMINE) [Concomitant]
  5. DIOVAN (VALSARTAN) [Concomitant]
  6. COUMADIN (WARFARIN) [Concomitant]
  7. PAXIL (PAROXETINE) [Concomitant]
  8. PRAVASTATIN [Concomitant]
  9. ALIGN (BIFIDOBACTERIUM INFANTIS) [Concomitant]

REACTIONS (1)
  - Diarrhoea [None]
